FAERS Safety Report 25925158 (Version 1)
Quarter: 2025Q4

REPORT INFORMATION
  Report Type: Spontaneous
  Country: EU (occurrence: EU)
  Receive Date: 20251015
  Receipt Date: 20251015
  Transmission Date: 20260117
  Serious: Yes (Other)
  Sender: TEVA
  Company Number: None

PATIENT
  Sex: Male

DRUGS (2)
  1. QUETIAPINE [Suspect]
     Active Substance: QUETIAPINE
     Indication: Product used for unknown indication
     Route: 048
     Dates: start: 20250731, end: 20250731
  2. PREGABALIN [Suspect]
     Active Substance: PREGABALIN
     Indication: Product used for unknown indication
     Dosage: 1 DF= 1 TABLET,
     Route: 048
     Dates: start: 20250731, end: 20250731

REACTIONS (4)
  - Suicide attempt [Unknown]
  - Intentional overdose [Unknown]
  - Oxygen saturation decreased [Unknown]
  - Bradycardia [Unknown]

NARRATIVE: CASE EVENT DATE: 20250731
